FAERS Safety Report 8966769 (Version 1)
Quarter: 2012Q4

REPORT INFORMATION
  Report Type: Report from Study
  Country: CA (occurrence: CA)
  Receive Date: 20121217
  Receipt Date: 20121217
  Transmission Date: 20130627
  Serious: Yes (Other)
  Sender: FDA-Public Use
  Company Number: CA-JNJFOC-20121203855

PATIENT
  Sex: Female
  Weight: 64.2 kg

DRUGS (3)
  1. REMICADE [Suspect]
     Indication: ANKYLOSING SPONDYLITIS
     Route: 042
  2. CELEBREX [Concomitant]
     Route: 065
  3. TYLENOL [Concomitant]
     Dosage: prn (as needed)
     Route: 065

REACTIONS (2)
  - Nasal polyps [Unknown]
  - Nasopharyngitis [Recovering/Resolving]
